FAERS Safety Report 23418748 (Version 2)
Quarter: 2024Q1

REPORT INFORMATION
  Report Type: Spontaneous
  Country: BR (occurrence: BR)
  Receive Date: 20240118
  Receipt Date: 20240223
  Transmission Date: 20240410
  Serious: Yes (Hospitalization)
  Sender: FDA-Public Use
  Company Number: BR-VERTEX PHARMACEUTICALS-2024-000742

PATIENT
  Age: 27 Year
  Sex: Female

DRUGS (2)
  1. TRIKAFTA [Suspect]
     Active Substance: ELEXACAFTOR\IVACAFTOR\TEZACAFTOR
     Indication: Cystic fibrosis
     Dosage: 200 MG ELEXACAFTOR/ 100 MG TEZACAFTOR/ 150 MG IVACAFTOR AND 150MG IVACAFTOR
     Route: 048
     Dates: start: 202304
  2. INSULIN NOS [Concomitant]
     Active Substance: INSULIN NOS
     Indication: Infective pulmonary exacerbation of cystic fibrosis

REACTIONS (3)
  - Pneumothorax [Recovered/Resolved]
  - Diabetes mellitus inadequate control [Unknown]
  - Lung disorder [Unknown]

NARRATIVE: CASE EVENT DATE: 20231201
